FAERS Safety Report 16199620 (Version 2)
Quarter: 2019Q2

REPORT INFORMATION
  Report Type: Report from Study
  Country: US (occurrence: US)
  Receive Date: 20190415
  Receipt Date: 20190618
  Transmission Date: 20190711
  Serious: Yes (Other)
  Sender: FDA-Public Use
  Company Number: US-BIOGEN-2019BI00724275

PATIENT
  Sex: Female

DRUGS (1)
  1. PLEGRIDY [Suspect]
     Active Substance: PEGINTERFERON BETA-1A
     Indication: MULTIPLE SCLEROSIS
     Route: 065
     Dates: start: 20190311

REACTIONS (10)
  - Scar [Unknown]
  - Drug dose omission by device [Unknown]
  - Mental impairment [Unknown]
  - Multiple sclerosis relapse [Unknown]
  - Injury associated with device [Unknown]
  - Injection site pain [Unknown]
  - Fatigue [Unknown]
  - Depression [Unknown]
  - Mobility decreased [Unknown]
  - Device malfunction [Unknown]
